FAERS Safety Report 5581595-1 (Version None)
Quarter: 2008Q1

REPORT INFORMATION
  Report Type: 
  Country: None (occurrence: None)
  Receive Date: 20080104
  Receipt Date: 20071227
  Transmission Date: 20080703
  Serious: Yes (Hospitalization)
  Sender: FDA-Public Use
  Company Number: DE-BAYER-200511086BVD

PATIENT
  Age: 80 Year
  Sex: Male
  Weight: 170 kg

DRUGS (12)
  1. SORAFENIB [Suspect]
     Indication: HEPATIC NEOPLASM MALIGNANT
     Dosage: TOTAL DAILY DOSE: 800 MG  UNIT DOSE: 400 MG
     Route: 048
     Dates: start: 20050805, end: 20050910
  2. SORAFENIB [Suspect]
     Dosage: TOTAL DAILY DOSE: 400 MG  UNIT DOSE: 200 MG
     Route: 048
     Dates: start: 20050915, end: 20051031
  3. PANTOPRAZOLE SODIUM [Concomitant]
     Route: 048
     Dates: start: 20050729
  4. UROXATRAL [Concomitant]
     Route: 048
     Dates: start: 19980101
  5. BERODUAL [Concomitant]
     Route: 055
     Dates: start: 20050729
  6. VIANI [Concomitant]
     Route: 048
     Dates: start: 20050808
  7. KONAKION [Concomitant]
     Route: 048
     Dates: start: 20050808
  8. TAVEGIL [Concomitant]
     Route: 048
     Dates: start: 20050906
  9. AMARYL [Concomitant]
     Route: 048
  10. CALCIUM [Concomitant]
     Route: 048
     Dates: start: 20050101
  11. LORZAAR [Concomitant]
     Route: 048
     Dates: start: 20050101
  12. MOXIFLOXACIN HCL [Concomitant]
     Route: 048
     Dates: start: 20051102, end: 20051109

REACTIONS (1)
  - GASTRIC ULCER [None]
